FAERS Safety Report 6096908-4 (Version None)
Quarter: 2009Q1

REPORT INFORMATION
  Report Type: 
  Country: None (occurrence: None)
  Receive Date: 20090227
  Receipt Date: 20090216
  Transmission Date: 20090719
  Serious: Yes (Hospitalization)
  Sender: FDA-Public Use
  Company Number: JP-PFIZER INC-2009167600

PATIENT

DRUGS (15)
  1. FARMORUBICIN [Suspect]
     Indication: BLADDER CANCER
     Dosage: 30 MG, EACH TIME
     Route: 043
     Dates: start: 20081125, end: 20081211
  2. SPIRIVA [Concomitant]
     Indication: EMPHYSEMA
     Route: 055
  3. ASPIRIN [Concomitant]
     Indication: CEREBRAL INFARCTION
     Route: 048
  4. PARIET [Concomitant]
     Indication: OESOPHAGITIS
     Dosage: UNK
     Route: 048
     Dates: start: 20080722
  5. GASMOTIN [Concomitant]
     Indication: GASTRITIS ATROPHIC
     Dosage: UNK
     Route: 048
     Dates: start: 20080722
  6. MUCOSTA [Concomitant]
     Indication: GASTRITIS ATROPHIC
     Dosage: UNK
     Route: 048
     Dates: start: 20080722
  7. KARY UNI [Concomitant]
     Indication: CATARACT
     Dosage: UNK
     Route: 031
  8. URIEF [Concomitant]
     Indication: BENIGN PROSTATIC HYPERPLASIA
     Route: 048
  9. ADJUST-A [Concomitant]
     Indication: CONSTIPATION
     Route: 048
  10. RHYTHMY [Concomitant]
     Indication: INSOMNIA
     Route: 048
  11. TELEMINSOFT [Concomitant]
     Indication: CONSTIPATION
     Route: 054
  12. CEFAZOLIN SODIUM [Concomitant]
     Indication: URINARY TRACT INFECTION
     Route: 042
  13. CRAVIT [Concomitant]
     Indication: URINARY TRACT INFECTION
  14. MAGNESIUM OXIDE [Concomitant]
     Dosage: UNK
     Route: 048
  15. EVIPROSTAT [Concomitant]
     Indication: BENIGN PROSTATIC HYPERPLASIA
     Route: 048

REACTIONS (3)
  - CARDIAC FAILURE [None]
  - ELECTROCARDIOGRAM ABNORMAL [None]
  - HYPONATRAEMIA [None]
